FAERS Safety Report 23920284 (Version 1)
Quarter: 2024Q2

REPORT INFORMATION
  Report Type: Spontaneous
  Country: US (occurrence: US)
  Receive Date: 20240530
  Receipt Date: 20240530
  Transmission Date: 20240716
  Serious: Yes (Other)
  Sender: FDA-Public Use
  Company Number: US-PFIZER INC-202400181083

PATIENT
  Age: 45 Year
  Sex: Female

DRUGS (1)
  1. METHOTREXATE SODIUM [Suspect]
     Active Substance: METHOTREXATE SODIUM
     Indication: Arthropathy
     Dosage: 0.8ML WEEKLY
     Route: 058
     Dates: start: 202302, end: 20230328

REACTIONS (3)
  - Syncope [Unknown]
  - Off label use [Unknown]
  - Drug ineffective for unapproved indication [Unknown]
